FAERS Safety Report 7795165-8 (Version None)
Quarter: 2011Q4

REPORT INFORMATION
  Report Type: 
  Country: None (occurrence: None)
  Receive Date: 20111004
  Receipt Date: 20110923
  Transmission Date: 20120403
  Serious: Yes (Hospitalization, Other)
  Sender: FDA-Public Use
  Company Number: US-BAYER-2011-069422

PATIENT
  Age: 47 Year
  Sex: Female

DRUGS (3)
  1. MIRENA [Suspect]
     Indication: MENORRHAGIA
  2. MIRENA [Suspect]
     Indication: CONTRACEPTION
  3. MIRENA [Suspect]
     Indication: MENSTRUAL CYCLE MANAGEMENT
     Dosage: 20 ?G/D, CONT
     Route: 015
     Dates: start: 20090407, end: 20100813

REACTIONS (4)
  - PAIN [None]
  - ABDOMINAL PAIN [None]
  - VAGINAL HAEMORRHAGE [None]
  - UTERINE PERFORATION [None]
